FAERS Safety Report 21636555 (Version 1)
Quarter: 2022Q4

REPORT INFORMATION
  Report Type: Spontaneous
  Country: AU (occurrence: AU)
  Receive Date: 20221124
  Receipt Date: 20221124
  Transmission Date: 20230113
  Serious: Yes (Hospitalization, Other)
  Sender: FDA-Public Use
  Company Number: AU-ALKEM LABORATORIES LIMITED-AU-ALKEM-2022-13156

PATIENT
  Age: 32 Year
  Sex: Male

DRUGS (5)
  1. GLICLAZIDE [Suspect]
     Active Substance: GLICLAZIDE
     Indication: Product used for unknown indication
     Dosage: 900 MILLIGRAM
     Route: 065
  2. METFORMIN HYDROCHLORIDE [Suspect]
     Active Substance: METFORMIN HYDROCHLORIDE
     Indication: Product used for unknown indication
     Dosage: 15 GRAM
     Route: 065
  3. ATENOLOL [Suspect]
     Active Substance: ATENOLOL
     Indication: Product used for unknown indication
     Dosage: 750 MILLIGRAM
     Route: 065
  4. FOSINOPRIL [Suspect]
     Active Substance: FOSINOPRIL
     Indication: Product used for unknown indication
     Dosage: 200 MILLIGRAM
     Route: 065
  5. VERAPAMIL [Suspect]
     Active Substance: VERAPAMIL HYDROCHLORIDE
     Indication: Product used for unknown indication
     Dosage: 3600 MILLIGRAM
     Route: 065

REACTIONS (8)
  - Renal failure [Unknown]
  - Hypotension [Unknown]
  - Bradycardia [Unknown]
  - Hypoglycaemia [Unknown]
  - Hyperlactacidaemia [Unknown]
  - Acidosis [Unknown]
  - Overdose [Unknown]
  - Toxicity to various agents [Unknown]
